FAERS Safety Report 9269112 (Version 1)
Quarter: 2013Q2

REPORT INFORMATION
  Report Type: Spontaneous
  Country: GB (occurrence: GB)
  Receive Date: 20130503
  Receipt Date: 20130503
  Transmission Date: 20140414
  Serious: Yes (Hospitalization)
  Sender: FDA-Public Use
  Company Number: GB-ROCHE-1220992

PATIENT
  Age: 22 Year
  Sex: Female
  Weight: 47.3 kg

DRUGS (8)
  1. TOCILIZUMAB [Suspect]
     Indication: JUVENILE IDIOPATHIC ARTHRITIS
     Route: 042
     Dates: start: 20120905, end: 20130207
  2. METHOTREXATE [Concomitant]
     Indication: JUVENILE IDIOPATHIC ARTHRITIS
     Route: 058
     Dates: start: 20121218
  3. DICLOFENAC [Concomitant]
     Indication: JUVENILE IDIOPATHIC ARTHRITIS
     Route: 048
     Dates: end: 20130228
  4. TRAMADOL [Concomitant]
     Indication: JUVENILE IDIOPATHIC ARTHRITIS
     Route: 048
  5. TRAMADOL [Concomitant]
     Indication: PAIN
     Route: 048
  6. CO-CODAMOL [Concomitant]
     Indication: PAIN
     Route: 048
  7. OMEPRAZOLE [Concomitant]
  8. SUCRALFATE [Concomitant]

REACTIONS (1)
  - Haematemesis [Recovered/Resolved]
